FAERS Safety Report 24334324 (Version 2)
Quarter: 2024Q3

REPORT INFORMATION
  Report Type: Report from Study
  Country: US (occurrence: US)
  Receive Date: 20240918
  Receipt Date: 20240926
  Transmission Date: 20241016
  Serious: No
  Sender: ROCHE
  Company Number: US-ROCHE-10000084670

PATIENT
  Age: 50 Year
  Sex: Female

DRUGS (5)
  1. OCREVUS [Suspect]
     Active Substance: OCRELIZUMAB
     Indication: Relapsing-remitting multiple sclerosis
     Route: 065
     Dates: start: 201803, end: 2020
  2. OCREVUS [Suspect]
     Active Substance: OCRELIZUMAB
     Dosage: RECEIVES ONE QUARTER NORMAL DOSE OF OCREVUS
     Route: 065
     Dates: start: 2020
  3. PAXLOVID [Concomitant]
     Active Substance: NIRMATRELVIR\RITONAVIR
     Indication: COVID-19
     Route: 048
     Dates: start: 20240129, end: 20240202
  4. TRIAMCINOLONE [Concomitant]
     Active Substance: TRIAMCINOLONE
     Dosage: APPLY 1GM TO EFFECTIVE AREAS TWICE A DAY AS NEEDED
  5. CIPLADINE [Concomitant]

REACTIONS (6)
  - Off label use [Unknown]
  - COVID-19 [Not Recovered/Not Resolved]
  - Blood immunoglobulin G decreased [Unknown]
  - Upper respiratory tract infection [Not Recovered/Not Resolved]
  - Aphonia [Not Recovered/Not Resolved]
  - Rash [Recovered/Resolved]

NARRATIVE: CASE EVENT DATE: 20200101
